FAERS Safety Report 21229208 (Version 3)
Quarter: 2022Q3

REPORT INFORMATION
  Report Type: Report from Study
  Country: CA (occurrence: CA)
  Receive Date: 20220818
  Receipt Date: 20220908
  Transmission Date: 20221027
  Serious: Yes (Hospitalization)
  Sender: FDA-Public Use
  Company Number: CA-ABBVIE-22K-028-4477779-00

PATIENT
  Sex: Male

DRUGS (1)
  1. SKYRIZI [Suspect]
     Active Substance: RISANKIZUMAB-RZAA
     Indication: Psoriasis
     Route: 058
     Dates: start: 20190808

REACTIONS (13)
  - Blister [Not Recovered/Not Resolved]
  - Burning sensation [Unknown]
  - Peripheral swelling [Unknown]
  - Pain [Unknown]
  - Inflammation [Unknown]
  - Gastritis [Unknown]
  - Eye swelling [Recovered/Resolved]
  - Peripheral swelling [Not Recovered/Not Resolved]
  - Psoriasis [Not Recovered/Not Resolved]
  - Dyshidrotic eczema [Unknown]
  - Genital disorder [Unknown]
  - Back disorder [Unknown]
  - Skin exfoliation [Unknown]

NARRATIVE: CASE EVENT DATE: 20220101
